FAERS Safety Report 8565887-X (Version None)
Quarter: 2012Q3

REPORT INFORMATION
  Report Type: 
  Country: None (occurrence: None)
  Receive Date: 20120803
  Receipt Date: 20110830
  Transmission Date: 20120928
  Serious: No
  Sender: FDA-Public Use
  Company Number: US-ABBOTT-10P-163-0694445-00

PATIENT
  Sex: Female

DRUGS (7)
  1. NIASPAN [Suspect]
     Indication: BLOOD TRIGLYCERIDES INCREASED
     Dosage: UNSPECIFIED DOSE; 3 TABLETS
     Route: 048
     Dates: start: 20100801
  2. NIASPAN [Suspect]
     Dates: start: 20101201
  3. PRAVACHOL [Concomitant]
     Indication: PRODUCT USED FOR UNKNOWN INDICATION
  4. LOVAZA [Concomitant]
     Indication: PRODUCT USED FOR UNKNOWN INDICATION
  5. LOVAZA [Concomitant]
  6. TRILIPIX [Concomitant]
     Indication: PRODUCT USED FOR UNKNOWN INDICATION
  7. ASPIRIN [Concomitant]
     Indication: PROPHYLAXIS
     Dosage: RANDOM USE

REACTIONS (8)
  - PRODUCTIVE COUGH [None]
  - MEDICATION RESIDUE [None]
  - URTICARIA [None]
  - FEELING HOT [None]
  - BLOOD GLUCOSE ABNORMAL [None]
  - GENERALISED ERYTHEMA [None]
  - DIARRHOEA [None]
  - PRURITUS GENERALISED [None]
